FAERS Safety Report 25169488 (Version 1)
Quarter: 2025Q2

REPORT INFORMATION
  Report Type: Spontaneous
  Country: US (occurrence: US)
  Receive Date: 20250407
  Receipt Date: 20250407
  Transmission Date: 20250716
  Serious: Yes (Other)
  Sender: SANDOZ
  Company Number: US-SANDOZ-SDZ2025US020302

PATIENT
  Sex: Female

DRUGS (22)
  1. AZITHROMYCIN [Suspect]
     Active Substance: AZITHROMYCIN
     Indication: Pyrexia
     Route: 065
  2. ACTIGALL [Concomitant]
     Active Substance: URSODIOL
     Indication: Product used for unknown indication
     Dosage: 300 MG, BID TAKE 1 CAPSULE (300 MG TOTAL) BY MOUTH 2 (TWO) TIMES A DAY.)
     Route: 048
     Dates: start: 20250103
  3. ALBUTEROL [Concomitant]
     Active Substance: ALBUTEROL
     Indication: Dyspnoea
     Route: 055
     Dates: start: 20220822
  4. ALBUTEROL [Concomitant]
     Active Substance: ALBUTEROL
     Indication: Wheezing
  5. ATARAX [Concomitant]
     Active Substance: HYDROXYZINE HYDROCHLORIDE
     Indication: Nausea
     Dosage: 10 MG, Q6H (TAKE 1 TABLET (10 MG TOTAL) BY MOUTH EVERY 6 (SIX) HOURS IF NEEDED)
     Route: 048
     Dates: start: 20240731
  6. ATARAX [Concomitant]
     Active Substance: HYDROXYZINE HYDROCHLORIDE
     Indication: Vomiting
  7. BACTRIM [Concomitant]
     Active Substance: SULFAMETHOXAZOLE\TRIMETHOPRIM
     Indication: Product used for unknown indication
     Route: 065
     Dates: start: 20250115
  8. BENADRYL [Concomitant]
     Active Substance: DIPHENHYDRAMINE HYDROCHLORIDE
     Indication: Rash
     Dosage: 25 MG, Q6H (TAKE 1 CAPSULE (25 MG TOTAL) BY MOUTH EVERY 6 (SIX) HOURS IF NEEDED)
     Route: 048
     Dates: start: 20250120
  9. BENADRYL [Concomitant]
     Active Substance: DIPHENHYDRAMINE HYDROCHLORIDE
     Indication: Pruritus
  10. CELEBREX [Concomitant]
     Active Substance: CELECOXIB
     Indication: Product used for unknown indication
     Dosage: 100 MG, BID (TAKE 1 CAPSULE (100 MG TOTAL) BY MOUTH 2 (TWO) TIMES A DAY)
     Route: 048
     Dates: start: 20250110
  11. CHRONULAC [Concomitant]
     Active Substance: LACTULOSE
     Indication: Constipation
     Dosage: 10 G, TID (TAKE 15 ML (10 G TOTAL) BY MOUTH 3 (THREE) TIMES A DAY IF NEEDED) (LACTULOSE (CHRONULAC)
     Route: 048
     Dates: start: 20240429
  12. DYNACIRC [Concomitant]
     Active Substance: ISRADIPINE
     Indication: Hypertension
     Dosage: 2.5 MG, Q6H (TAKE 1 CAPSULE (2.5 MG TOTAL) BY MOUTH EVERY 6 (SIX) HOURS IF NEEDED (HIGH BLOOD PRESSU
     Route: 048
     Dates: start: 20250202
  13. EMLA [Concomitant]
     Active Substance: LIDOCAINE\PRILOCAINE
     Indication: Product used for unknown indication
     Route: 061
     Dates: start: 20240429
  14. GLYCOLAX [Concomitant]
     Active Substance: POLYETHYLENE GLYCOL 3350
     Indication: Constipation
     Dosage: UNK, BID (MIX A CAPFUL (17 G) IN LIQUID AND TAKE BY MOUTH 2 (TWO) TIMES A DAY IF NEEDED)
     Route: 048
     Dates: start: 20240429
  15. LEVAQUIN [Concomitant]
     Active Substance: LEVOFLOXACIN
     Indication: Product used for unknown indication
     Dosage: 250 MG, QD (TAKE 1 TABLET (250 MG TOTAL) BY MOUTH 1 (ONE) TIME EACH DAY.)
     Route: 048
     Dates: start: 20241009
  16. NORVASC [Concomitant]
     Active Substance: AMLODIPINE BESYLATE
     Indication: Product used for unknown indication
     Dosage: TAKE 1 TABLET (2.5 MG TOTAL) BY MOUTH 2 (TWO) TIMES A DAY. (STOP DATE: 02-MAR-2025)
     Route: 048
     Dates: start: 20250204
  17. PEPCID AC [Concomitant]
     Active Substance: FAMOTIDINE
     Indication: Dyspepsia
     Dosage: 10 MG, BID (TAKE 1 TABLET (10 MG TOTAL) BY MOUTH 2 (TWO) TIMES A DAY IF NEEDED)
     Route: 048
     Dates: start: 20250120
  18. ROXICODONE [Concomitant]
     Active Substance: OXYCODONE HYDROCHLORIDE
     Indication: Pain
     Dosage: UNK, Q4H (OXYCODONE (ROXICODONE) 5 MG/5 ML SOLUTION) (TAKE 1.5 ML (1.5 MG TOTAL) BY MOUTH EVERY 4 (F
     Route: 048
     Dates: start: 20240924
  19. TYLENOL [Concomitant]
     Active Substance: ACETAMINOPHEN
     Indication: Product used for unknown indication
     Route: 048
  20. VFEND [Concomitant]
     Active Substance: VORICONAZOLE
     Indication: Product used for unknown indication
     Dosage: 200 MG, BID (TAKE 1 TABLET (200 MG TOTAL) BY MOUTH 2 (TWO) TIMES A DAY.)
     Route: 048
     Dates: start: 20250115
  21. ZOFRAN [Concomitant]
     Active Substance: ONDANSETRON HYDROCHLORIDE
     Indication: Nausea
     Dosage: 4 MG, Q6H (TAKE 1 TABLET (4 MG TOTAL) BY MOUTH EVERY 6 (SIX) HOURS IF NEEDED)
     Route: 048
     Dates: start: 20250115
  22. ZOFRAN [Concomitant]
     Active Substance: ONDANSETRON HYDROCHLORIDE
     Indication: Vomiting

REACTIONS (5)
  - Pneumonia [Unknown]
  - Thrombocytopenia [Unknown]
  - Leukocytosis [Unknown]
  - Anaemia [Unknown]
  - Drug ineffective [Unknown]
